FAERS Safety Report 21515765 (Version 2)
Quarter: 2022Q4

REPORT INFORMATION
  Report Type: Spontaneous
  Country: ES (occurrence: ES)
  Receive Date: 20221027
  Receipt Date: 20221130
  Transmission Date: 20230113
  Serious: Yes (Hospitalization)
  Sender: FDA-Public Use
  Company Number: ES-BAYER-2022P014344

PATIENT
  Sex: Male

DRUGS (2)
  1. NUBEQA [Suspect]
     Active Substance: DAROLUTAMIDE
     Indication: Hormone-dependent prostate cancer
     Dosage: UNK
  2. NUBEQA [Suspect]
     Active Substance: DAROLUTAMIDE
     Indication: Metastasis

REACTIONS (3)
  - Muscular weakness [None]
  - Pain in extremity [None]
  - Off label use [None]
